FAERS Safety Report 12470892 (Version 1)
Quarter: 2016Q2

REPORT INFORMATION
  Report Type: Spontaneous
  Country: US (occurrence: None)
  Receive Date: 20160615
  Receipt Date: 20160615
  Transmission Date: 20160815
  Serious: Yes (Other)
  Sender: FDA-Public Use
  Company Number: None

PATIENT
  Age: 32 Year
  Sex: Female
  Weight: 56.25 kg

DRUGS (6)
  1. CALCIUM WITH D3 [Concomitant]
  2. ZECUITY [Suspect]
     Active Substance: SUMATRIPTAN SUCCINATE
  3. MAGNESIUM [Concomitant]
     Active Substance: MAGNESIUM
  4. COQ10 [Concomitant]
     Active Substance: UBIDECARENONE
  5. TROKENDI XR [Concomitant]
     Active Substance: TOPIRAMATE
  6. B2 [Concomitant]

REACTIONS (10)
  - Scab [None]
  - Device leakage [None]
  - Application site pain [None]
  - Burning sensation [None]
  - Drug ineffective [None]
  - Application site erythema [None]
  - Tenderness [None]
  - Scar [None]
  - Impaired work ability [None]
  - Hyperaesthesia [None]

NARRATIVE: CASE EVENT DATE: 20160610
